FAERS Safety Report 9199154 (Version 4)
Quarter: 2013Q4

REPORT INFORMATION
  Report Type: Spontaneous
  Country: US (occurrence: US)
  Receive Date: 20130329
  Receipt Date: 20131003
  Transmission Date: 20140711
  Serious: Yes (Hospitalization, Disabling, Other)
  Sender: FDA-Public Use
  Company Number: US-009507513-1303USA012863

PATIENT
  Sex: Female
  Weight: 113.38 kg

DRUGS (1)
  1. NUVARING [Suspect]
     Indication: CONTRACEPTION
     Dosage: UNK, IN 3 WEEKS, OUT 1 WEEK
     Route: 067
     Dates: start: 201102, end: 201104

REACTIONS (10)
  - Thrombectomy [Recovering/Resolving]
  - Cerebral infarction [Recovering/Resolving]
  - Deep vein thrombosis [Unknown]
  - Drug ineffective [Unknown]
  - Atrial septal defect repair [Unknown]
  - Maternal exposure before pregnancy [Unknown]
  - Migraine [Unknown]
  - Russell^s viper venom time abnormal [Unknown]
  - Sleep apnoea syndrome [Unknown]
  - Hypertension [Unknown]
